FAERS Safety Report 7331452-5 (Version None)
Quarter: 2011Q1

REPORT INFORMATION
  Report Type: 
  Country: None (occurrence: None)
  Receive Date: 20110304
  Receipt Date: 20110228
  Transmission Date: 20110831
  Serious: Yes (Other)
  Sender: FDA-Public Use
  Company Number: BR-EISAI INC-E2020-08702-SOL-BR

PATIENT
  Sex: Female

DRUGS (4)
  1. ALOIS [Concomitant]
  2. ERANZ [Suspect]
     Indication: DEMENTIA ALZHEIMER'S TYPE
     Route: 048
     Dates: start: 20100607
  3. XALATAN [Concomitant]
     Indication: GLAUCOMA
     Dates: start: 20030101
  4. XALATAN [Concomitant]

REACTIONS (3)
  - DYSPHAGIA [None]
  - HYPOKINESIA [None]
  - ABASIA [None]
